FAERS Safety Report 14551482 (Version 1)
Quarter: 2018Q1

REPORT INFORMATION
  Report Type: Spontaneous
  Country: GB (occurrence: GB)
  Receive Date: 20180220
  Receipt Date: 20180220
  Transmission Date: 20180509
  Serious: Yes (Hospitalization)
  Sender: FDA-Public Use
  Company Number: GB-CONCORDIA PHARMACEUTICALS INC.-E2B_00009917

PATIENT
  Age: 86 Year
  Sex: Female

DRUGS (2)
  1. PREDNISOLONE. [Suspect]
     Active Substance: PREDNISOLONE
     Indication: LOWER RESPIRATORY TRACT INFECTION
     Dosage: VARIABLE 10-7MG DAILY
     Route: 048
     Dates: start: 20170301, end: 20180122
  2. UNSPECIFIED DRUG [Concomitant]
     Active Substance: UNSPECIFIED INGREDIENT
     Dosage: BONE PROTECTION MEDICATION

REACTIONS (1)
  - Femoral neck fracture [Recovering/Resolving]

NARRATIVE: CASE EVENT DATE: 20180121
